FAERS Safety Report 6729157-4 (Version None)
Quarter: 2010Q2

REPORT INFORMATION
  Report Type: 
  Country: None (occurrence: None)
  Receive Date: 20100517
  Receipt Date: 20100419
  Transmission Date: 20101027
  Serious: No
  Sender: FDA-Public Use
  Company Number: US-ABBOTT-10P-163-0639313-00

PATIENT

DRUGS (2)
  1. SIMCOR [Suspect]
     Indication: DRUG USE FOR UNKNOWN INDICATION
  2. SIMCOR [Suspect]
     Dosage: DOUBLED DOSE

REACTIONS (1)
  - DRUG INEFFECTIVE [None]
